FAERS Safety Report 24281016 (Version 1)
Quarter: 2024Q3

REPORT INFORMATION
  Report Type: Spontaneous
  Country: IN (occurrence: IN)
  Receive Date: 20240904
  Receipt Date: 20240904
  Transmission Date: 20241017
  Serious: Yes (Death)
  Sender: STRIDES
  Company Number: IN-STRIDES ARCOLAB LIMITED-2024SP010999

PATIENT

DRUGS (5)
  1. METHOTREXATE [Suspect]
     Active Substance: METHOTREXATE
     Indication: Acute promyelocytic leukaemia
     Dosage: UNK;RECEIVED AS PART OF MAINTENANCE THERAPY
     Route: 065
  2. TRETINOIN [Suspect]
     Active Substance: TRETINOIN
     Indication: Acute promyelocytic leukaemia
     Dosage: 45 MILLIGRAM/SQ. METER, QD
     Route: 065
  3. TRETINOIN [Suspect]
     Active Substance: TRETINOIN
     Dosage: UNK;RECEIVED AS PART OF MAINTENANCE THERAPY
     Route: 065
  4. DAUNORUBICIN [Suspect]
     Active Substance: DAUNORUBICIN
     Indication: Acute promyelocytic leukaemia
     Dosage: 60 MILLIGRAM/SQ. METER, QD
     Route: 065
  5. MERCAPTOPURINE [Suspect]
     Active Substance: MERCAPTOPURINE
     Indication: Acute promyelocytic leukaemia
     Dosage: UNK;RECEIVED AS PART OF MAINTENANCE THERAPY
     Route: 065

REACTIONS (4)
  - Coagulopathy [Fatal]
  - Haemorrhage intracranial [Fatal]
  - Thrombocytopenia [Fatal]
  - Off label use [Unknown]
